FAERS Safety Report 7486101-2 (Version None)
Quarter: 2011Q2

REPORT INFORMATION
  Report Type: 
  Country: None (occurrence: None)
  Receive Date: 20110517
  Receipt Date: 20101022
  Transmission Date: 20111010
  Serious: Yes (Hospitalization)
  Sender: FDA-Public Use
  Company Number: US-ASTRAZENECA-2010SE50398

PATIENT
  Age: 35 Year
  Sex: Female

DRUGS (7)
  1. ATIVAN [Concomitant]
  2. SEROQUEL XR [Suspect]
     Indication: BIPOLAR DISORDER
     Route: 048
     Dates: start: 20100401, end: 20100101
  3. TRAZODONE HCL [Concomitant]
  4. DILAUDID [Concomitant]
  5. VALIUM [Concomitant]
  6. SEROQUEL XR [Suspect]
     Route: 048
     Dates: start: 20100101
  7. LAMICTAL [Concomitant]

REACTIONS (3)
  - TORSADE DE POINTES [None]
  - INTENTIONAL DRUG MISUSE [None]
  - ELECTROCARDIOGRAM QT PROLONGED [None]
